FAERS Safety Report 24183848 (Version 3)
Quarter: 2024Q4

REPORT INFORMATION
  Report Type: Spontaneous
  Country: US (occurrence: US)
  Receive Date: 20240807
  Receipt Date: 20241209
  Transmission Date: 20250115
  Serious: Yes (Other)
  Sender: BAYER HEALTHCARE PHARMACEUTICALS INC.
  Company Number: US-BAYER-2024A110472

PATIENT
  Age: 63 Year
  Sex: Female
  Weight: 140 kg

DRUGS (2)
  1. KOVALTRY [Suspect]
     Active Substance: ANTIHEMOPHILIC FACTOR, HUMAN RECOMBINANT
     Indication: Factor VIII deficiency
     Dosage: 2000 IU, AS NEEDED FOR BREAKTHROUGH BLEEDING PRIOR TO INVASIVE PROCEDURE/ DENTAL WORK
     Route: 042
  2. KOVALTRY [Suspect]
     Active Substance: ANTIHEMOPHILIC FACTOR, HUMAN RECOMBINANT
     Indication: Factor VIII deficiency
     Dosage: 2000 IU
     Route: 042
     Dates: start: 201702

REACTIONS (4)
  - Haemarthrosis [None]
  - Dental care [None]
  - Haemarthrosis [None]
  - Haemorrhage [Not Recovered/Not Resolved]
